FAERS Safety Report 10756081 (Version 1)
Quarter: 2015Q1

REPORT INFORMATION
  Report Type: Spontaneous
  Country: US (occurrence: None)
  Receive Date: 20150123
  Receipt Date: 20150123
  Transmission Date: 20150721
  Serious: No
  Sender: FDA-Public Use
  Company Number: 2014TUS005787

PATIENT
  Age: 38 Year
  Sex: Male
  Weight: 99.3 kg

DRUGS (4)
  1. ENTOCORT EC (BUDESONIDE) [Concomitant]
  2. VICODIN 5 (HYDROCODONE BITARTRATE, PARACETAMOL) [Concomitant]
  3. ENTYVIO [Suspect]
     Active Substance: VEDOLIZUMAB
     Indication: CROHN^S DISEASE
     Route: 042
     Dates: start: 20140630, end: 2014
  4. BENTYL (DICYCLOVERINE HYDROCHLORIDE) [Concomitant]

REACTIONS (1)
  - Headache [None]
